FAERS Safety Report 4861177-7 (Version None)
Quarter: 2005Q4

REPORT INFORMATION
  Report Type: 
  Country: None (occurrence: None)
  Receive Date: 20051216
  Receipt Date: 20051209
  Transmission Date: 20060501
  Serious: Yes (Hospitalization)
  Sender: FDA-Public Use
  Company Number: KII-2005-0020174

PATIENT
  Age: 37 Year
  Sex: Female

DRUGS (6)
  1. OXYCONTIN [Suspect]
     Indication: WRONG DRUG ADMINISTERED
     Dosage: ORAL
     Route: 048
  2. ACIPHEX [Suspect]
     Indication: WRONG DRUG ADMINISTERED
     Dosage: ORAL
     Route: 048
  3. BENZODIAZEPINE DERIVATIVES () [Suspect]
     Indication: WRONG DRUG ADMINISTERED
     Dosage: ORAL
     Route: 048
  4. ANTIEPILEPTICS () [Suspect]
     Indication: WRONG DRUG ADMINISTERED
     Dosage: ORAL
     Route: 048
  5. ACETAMINOPHEN AND HYDROCODONE BITARTRATE [Suspect]
     Indication: WRONG DRUG ADMINISTERED
     Dosage: ORAL
     Route: 048
  6. MAG-OX (MAGNESIUM OXIDE) [Suspect]
     Indication: WRONG DRUG ADMINISTERED
     Dosage: ORAL
     Route: 048

REACTIONS (5)
  - AGITATION [None]
  - HALLUCINATION [None]
  - MYDRIASIS [None]
  - SINUS TACHYCARDIA [None]
  - WRONG DRUG ADMINISTERED [None]
